FAERS Safety Report 8435923-X (Version None)
Quarter: 2012Q2

REPORT INFORMATION
  Report Type: 
  Country: None (occurrence: None)
  Receive Date: 20120608
  Receipt Date: 20120608
  Transmission Date: 20120825
  Serious: Yes (Other)
  Sender: FDA-Public Use
  Company Number: None

PATIENT
  Age: 49 Year
  Sex: Female
  Weight: 52.1637 kg

DRUGS (1)
  1. LEVAQUIN [Suspect]
     Indication: INFECTION PROPHYLAXIS
     Dosage: 1 PILL DAILY FOR 5 DAYS  EVERY TWO WEEKS
     Dates: start: 20110601, end: 20111028

REACTIONS (5)
  - JOINT RANGE OF MOTION DECREASED [None]
  - PLANTAR FASCIITIS [None]
  - CONNECTIVE TISSUE DISORDER [None]
  - PAIN [None]
  - GAIT DISTURBANCE [None]
